FAERS Safety Report 9558565 (Version 1)
Quarter: 2013Q3

REPORT INFORMATION
  Report Type: Report from Study
  Country: BR (occurrence: BR)
  Receive Date: 20130926
  Receipt Date: 20130926
  Transmission Date: 20140515
  Serious: Yes (Other)
  Sender: FDA-Public Use
  Company Number: PHHY2013BR107375

PATIENT
  Sex: Female
  Weight: 45 kg

DRUGS (2)
  1. EXJADE [Suspect]
     Indication: SICKLE CELL ANAEMIA
     Dosage: 4 DF, UNK
     Route: 048
  2. FOLIC ACID [Concomitant]
     Dosage: UNK UKN, UNK

REACTIONS (1)
  - Hepatitis B [Not Recovered/Not Resolved]
